FAERS Safety Report 9256903 (Version 1)
Quarter: 2013Q2

REPORT INFORMATION
  Report Type: Spontaneous
  Country: US (occurrence: None)
  Receive Date: 20130424
  Receipt Date: 20130424
  Transmission Date: 20140414
  Serious: No
  Sender: FDA-Public Use
  Company Number: 2013-00091

PATIENT
  Sex: Female

DRUGS (1)
  1. UNSPECIFIED ZICAM PRODUCT [Suspect]
     Dosage: USED IN EACH NOSTRIL ONCE DAILY?

REACTIONS (2)
  - Ageusia [None]
  - Anosmia [None]
